FAERS Safety Report 7224840-9 (Version None)
Quarter: 2011Q1

REPORT INFORMATION
  Report Type: 
  Country: None (occurrence: None)
  Receive Date: 20110113
  Receipt Date: 20110107
  Transmission Date: 20110831
  Serious: Yes (Hospitalization, Other)
  Sender: FDA-Public Use
  Company Number: US-ELI_LILLY_AND_COMPANY-US201101002149

PATIENT
  Sex: Male

DRUGS (2)
  1. HUMATROPE [Suspect]
     Dosage: 2.8 MG, UNKNOWN
     Route: 065
     Dates: start: 20080401
  2. HUMATROPE [Suspect]
     Dosage: 3 MG, UNKNOWN
     Route: 065

REACTIONS (2)
  - FALL [None]
  - EPIPHYSIOLYSIS [None]
